FAERS Safety Report 6106292-5 (Version None)
Quarter: 2009Q1

REPORT INFORMATION
  Report Type: 
  Country: None (occurrence: None)
  Receive Date: 20090306
  Receipt Date: 20090226
  Transmission Date: 20090719
  Serious: Yes (Hospitalization, Other)
  Sender: FDA-Public Use
  Company Number: PHHY2008JP14425

PATIENT
  Sex: Male
  Weight: 63 kg

DRUGS (4)
  1. GLEEVEC [Suspect]
     Indication: PROPHYLAXIS
     Dosage: 400 MG/DAY
     Route: 048
     Dates: start: 20060719, end: 20060901
  2. GLEEVEC [Suspect]
     Dosage: 100 MG/DAY
     Route: 048
     Dates: start: 20060902
  3. PROGRAF [Concomitant]
     Indication: CHRONIC GRAFT VERSUS HOST DISEASE
     Dosage: 2 MG
     Route: 048
     Dates: start: 20060701
  4. ITRIZOLE [Concomitant]
     Indication: FUNGAL INFECTION
     Dosage: 200 MG
     Route: 048
     Dates: start: 20060701

REACTIONS (10)
  - ACUTE GRAFT VERSUS HOST DISEASE [None]
  - BONE MARROW TRANSPLANT [None]
  - CONDITION AGGRAVATED [None]
  - DRUG LEVEL DECREASED [None]
  - FACE OEDEMA [None]
  - GENERALISED ERYTHEMA [None]
  - GRAFT VERSUS HOST DISEASE [None]
  - LEUKAEMIA RECURRENT [None]
  - PLATELET COUNT DECREASED [None]
  - WHITE BLOOD CELL COUNT DECREASED [None]
